FAERS Safety Report 4842365-2 (Version None)
Quarter: 2005Q4

REPORT INFORMATION
  Report Type: 
  Country: None (occurrence: None)
  Receive Date: 20051125
  Receipt Date: 20051114
  Transmission Date: 20060501
  Serious: Yes (Hospitalization)
  Sender: FDA-Public Use
  Company Number: 2005143242

PATIENT
  Age: 48 Year
  Sex: Male

DRUGS (1)
  1. CAVERJECT [Suspect]
     Indication: ERECTILE DYSFUNCTION
     Dosage: (20 MCG)
     Dates: start: 20050815

REACTIONS (4)
  - DEVICE FAILURE [None]
  - FOREIGN BODY TRAUMA [None]
  - SELF-MEDICATION [None]
  - TREATMENT NONCOMPLIANCE [None]
